FAERS Safety Report 4478454-4 (Version None)
Quarter: 2004Q4

REPORT INFORMATION
  Report Type: 
  Country: None (occurrence: None)
  Receive Date: 20041013
  Receipt Date: 20040928
  Transmission Date: 20050328
  Serious: Yes (Other)
  Sender: FDA-Public Use
  Company Number: US_0409106194

PATIENT
  Age: 11 Month
  Sex: Female

DRUGS (4)
  1. CEFACLOR [Suspect]
     Indication: PNEUMONIA
     Dosage: 200 MG
     Dates: start: 20040810, end: 20040815
  2. FLUMARIN (FLOMOXEF SODIUM) [Concomitant]
  3. PROCATEROL HCL [Concomitant]
  4. MUCOSOLVAN (AMBROXOL HYDROCHLORIDE) [Concomitant]

REACTIONS (1)
  - GRANULOCYTOPENIA [None]
